FAERS Safety Report 8412607-5 (Version None)
Quarter: 2012Q2

REPORT INFORMATION
  Report Type: 
  Country: None (occurrence: None)
  Receive Date: 20120605
  Receipt Date: 20120522
  Transmission Date: 20120825
  Serious: Yes (Hospitalization, Other)
  Sender: FDA-Public Use
  Company Number: IT-CELGENEUS-083-21880-12052658

PATIENT
  Sex: Male

DRUGS (6)
  1. RAMIPRIL [Concomitant]
     Route: 048
  2. REVLIMID [Suspect]
     Indication: MULTIPLE MYELOMA
     Dosage: 10 MILLIGRAM
     Route: 048
     Dates: start: 20100118, end: 20120405
  3. PREDNISONE [Suspect]
     Indication: MULTIPLE MYELOMA
     Dosage: 25 MILLIGRAM
     Route: 048
     Dates: start: 20100118, end: 20120405
  4. GONADORELIN INJ [Concomitant]
     Route: 065
  5. CARDIOASPIRINE [Concomitant]
     Route: 048
  6. CALCIUM [Concomitant]
     Route: 065

REACTIONS (2)
  - RENAL FAILURE ACUTE [None]
  - PROSTATE CANCER [None]
